FAERS Safety Report 7640875-6 (Version None)
Quarter: 2011Q3

REPORT INFORMATION
  Report Type: 
  Country: None (occurrence: None)
  Receive Date: 20110728
  Receipt Date: 20110718
  Transmission Date: 20111222
  Serious: Yes (Hospitalization)
  Sender: FDA-Public Use
  Company Number: DE-JNJFOC-20110708195

PATIENT
  Age: 71 Year
  Sex: Female
  Weight: 88 kg

DRUGS (2)
  1. FRAXIPARIN [Concomitant]
     Indication: EMBOLISM
     Dates: start: 19930101, end: 20110628
  2. XARELTO [Suspect]
     Indication: EMBOLISM
     Route: 048
     Dates: start: 20110629, end: 20110704

REACTIONS (1)
  - PULMONARY EMBOLISM [None]
